FAERS Safety Report 5268622-6 (Version None)
Quarter: 2007Q1

REPORT INFORMATION
  Report Type: 
  Country: None (occurrence: None)
  Receive Date: 20070315
  Receipt Date: 20070315
  Transmission Date: 20070707
  Serious: Yes (Life-Threatening)
  Sender: FDA-Public Use
  Company Number: None

PATIENT
  Age: 33 Year
  Sex: Female
  Weight: 54.4316 kg

DRUGS (3)
  1. AMBIEN [Suspect]
     Indication: INSOMNIA
     Dosage: AS NEEDED  PO
     Route: 048
     Dates: start: 19970101, end: 19970228
  2. VARIOUS MOOD STABILIZERS [Concomitant]
  3. ANTI-PSYCHOTICS [Concomitant]

REACTIONS (4)
  - COGNITIVE DISORDER [None]
  - IMPAIRED DRIVING ABILITY [None]
  - JUDGEMENT IMPAIRED [None]
  - ROAD TRAFFIC ACCIDENT [None]
